FAERS Safety Report 6466987-0 (Version None)
Quarter: 2009Q4

REPORT INFORMATION
  Report Type: 
  Country: None (occurrence: None)
  Receive Date: 20091202
  Receipt Date: 20091125
  Transmission Date: 20100525
  Serious: Yes (Hospitalization, Disabling)
  Sender: FDA-Public Use
  Company Number: US-GILEAD-2009-0025689

PATIENT
  Sex: Male
  Weight: 68.1 kg

DRUGS (13)
  1. LETAIRIS [Suspect]
     Indication: PULMONARY ARTERIAL HYPERTENSION
     Route: 048
     Dates: start: 20070709
  2. IMDUR [Concomitant]
  3. HYDROCHLOROTHIAZIDE [Concomitant]
  4. CARDIZEM [Concomitant]
  5. ALBUTEROL [Concomitant]
  6. ADVAIR DISKUS 100/50 [Concomitant]
  7. PAXIL [Concomitant]
  8. AVODART [Concomitant]
  9. MUCINEX [Concomitant]
  10. FLOMAX [Concomitant]
  11. GLUCOTROL [Concomitant]
  12. CRESTOR [Concomitant]
  13. FOLIC ACID [Concomitant]

REACTIONS (1)
  - CEREBROVASCULAR ACCIDENT [None]
